FAERS Safety Report 8167888-2 (Version None)
Quarter: 2012Q1

REPORT INFORMATION
  Report Type: 
  Country: None (occurrence: None)
  Receive Date: 20120227
  Receipt Date: 20120215
  Transmission Date: 20120608
  Serious: Yes (Death)
  Sender: FDA-Public Use
  Company Number: ES-ROCHE-1040984

PATIENT
  Age: 46 Year
  Sex: Male
  Weight: 68 kg

DRUGS (1)
  1. VEMURAFENIB [Suspect]
     Indication: METASTATIC MALIGNANT MELANOMA
     Dosage: DATE OF LAST DOSE PRIOR TO SAE: 30 JAN 2012
     Route: 048
     Dates: start: 20120105

REACTIONS (1)
  - DEATH [None]
